FAERS Safety Report 10418328 (Version 4)
Quarter: 2015Q1

REPORT INFORMATION
  Report Type: Spontaneous
  Country: JP (occurrence: JP)
  Receive Date: 20140829
  Receipt Date: 20150129
  Transmission Date: 20150720
  Serious: Yes (Death, Life-Threatening, Hospitalization, Other)
  Sender: FDA-Public Use
  Company Number: JP-ROCHE-1448467

PATIENT
  Age: 73 Year
  Sex: Female
  Weight: 62 kg

DRUGS (2)
  1. TYKERB [Suspect]
     Active Substance: LAPATINIB DITOSYLATE
     Indication: BREAST CANCER RECURRENT
     Route: 048
     Dates: start: 20140725, end: 20140803
  2. XELODA [Suspect]
     Active Substance: CAPECITABINE
     Indication: BREAST CANCER RECURRENT
     Route: 048
     Dates: start: 20140725, end: 20140731

REACTIONS (16)
  - Pulmonary oedema [Fatal]
  - Septic shock [Unknown]
  - Haemorrhage [Fatal]
  - Mucous membrane disorder [Not Recovered/Not Resolved]
  - Stomatitis [Not Recovered/Not Resolved]
  - Nausea [Not Recovered/Not Resolved]
  - Pneumonia [Fatal]
  - Disseminated intravascular coagulation [Fatal]
  - Diarrhoea [Not Recovered/Not Resolved]
  - Hepatic failure [Fatal]
  - Vomiting [Unknown]
  - Renal failure [Unknown]
  - Gastrointestinal haemorrhage [Fatal]
  - Multi-organ failure [Fatal]
  - White blood cell count decreased [Not Recovered/Not Resolved]
  - Bone marrow failure [Not Recovered/Not Resolved]

NARRATIVE: CASE EVENT DATE: 201408
